FAERS Safety Report 20990714 (Version 3)
Quarter: 2022Q3

REPORT INFORMATION
  Report Type: Spontaneous
  Country: NL (occurrence: NL)
  Receive Date: 20220622
  Receipt Date: 20220715
  Transmission Date: 20221027
  Serious: Yes (Other)
  Sender: FDA-Public Use
  Company Number: NL-CELLTRION INC.-2022NL009491

PATIENT

DRUGS (13)
  1. RITUXIMAB [Suspect]
     Active Substance: RITUXIMAB
     Indication: Glomerulonephritis membranous
     Dosage: IV 2X1G
     Route: 042
     Dates: start: 201712
  2. RITUXIMAB [Suspect]
     Active Substance: RITUXIMAB
     Dosage: IV 1G
     Route: 042
     Dates: start: 20190403
  3. RITUXIMAB [Suspect]
     Active Substance: RITUXIMAB
     Dosage: IV 1G
     Route: 042
     Dates: start: 20190318
  4. RITUXIMAB [Suspect]
     Active Substance: RITUXIMAB
     Dosage: 2X1G
     Route: 065
     Dates: start: 20210212
  5. RITUXIMAB [Suspect]
     Active Substance: RITUXIMAB
     Dosage: 1 G, CUMULATIVE DOSE, 4 G ,REINTRODUCE RITUXIMAB(2 G)
     Dates: start: 2016
  6. CYCLOPHOSPHAMIDE [Suspect]
     Active Substance: CYCLOPHOSPHAMIDE
     Indication: Glomerulonephritis membranous
     Dosage: 0.5 MG/KG, QD
     Dates: start: 20170907
  7. CYCLOPHOSPHAMIDE [Suspect]
     Active Substance: CYCLOPHOSPHAMIDE
     Dosage: 1.5 MG/KG, QD
     Dates: start: 20180907
  8. DARZALEX [Suspect]
     Active Substance: DARATUMUMAB
     Indication: Glomerulonephritis membranous
     Dosage: 16 MG/KG, 1/WEEK
     Dates: start: 20200623
  9. DEXAMETHASONE [Suspect]
     Active Substance: DEXAMETHASONE
     Indication: Glomerulonephritis membranous
     Dosage: UNK
     Dates: start: 20190528
  10. MYCOPHENOLATE MOFETIL [Suspect]
     Active Substance: MYCOPHENOLATE MOFETIL
     Indication: Glomerulonephritis membranous
     Dosage: UNK
     Route: 065
     Dates: start: 201606
  11. PREDNISOLONE [Suspect]
     Active Substance: PREDNISOLONE
     Indication: Glomerulonephritis membranous
     Dosage: UNK
     Route: 065
     Dates: start: 201606
  12. VELCADE [Suspect]
     Active Substance: BORTEZOMIB
     Indication: Glomerulonephritis membranous
     Dosage: UNK
     Dates: start: 20190528
  13. PREDNISOLONE [Concomitant]
     Active Substance: PREDNISOLONE
     Indication: Glomerulonephritis membranous
     Dosage: UNK
     Dates: start: 201606

REACTIONS (8)
  - Autoimmune disorder [Unknown]
  - Drug intolerance [Recovering/Resolving]
  - Neuropathy peripheral [Unknown]
  - Drug ineffective [Unknown]
  - Therapy non-responder [Unknown]
  - Product use in unapproved indication [Unknown]
  - Off label use [Unknown]
  - Off label use [Unknown]

NARRATIVE: CASE EVENT DATE: 20190701
